FAERS Safety Report 7874536-5 (Version None)
Quarter: 2011Q4

REPORT INFORMATION
  Report Type: 
  Country: None (occurrence: None)
  Receive Date: 20111030
  Receipt Date: 20111024
  Transmission Date: 20120403
  Serious: Yes (Death, Hospitalization)
  Sender: FDA-Public Use
  Company Number: MX-SANOFI-AVENTIS-2011SA070274

PATIENT
  Age: 86 Year
  Sex: Female

DRUGS (4)
  1. PLAVIX [Suspect]
     Indication: THROMBOSIS PROPHYLAXIS
     Route: 048
     Dates: start: 20080101, end: 20110826
  2. NIFEDIPINE [Concomitant]
     Route: 048
     Dates: start: 20070101, end: 20110826
  3. OMEPRAZOLE [Concomitant]
     Route: 042
     Dates: start: 20110801, end: 20110826
  4. MICARDIS [Concomitant]
     Route: 048
     Dates: start: 20070101, end: 20110826

REACTIONS (1)
  - GAS GANGRENE [None]
